FAERS Safety Report 5734113-9 (Version None)
Quarter: 2008Q2

REPORT INFORMATION
  Report Type: 
  Country: None (occurrence: None)
  Receive Date: 20080509
  Receipt Date: 20080502
  Transmission Date: 20081010
  Serious: Yes (Hospitalization)
  Sender: FDA-Public Use
  Company Number: DE-ABBOTT-08P-062-0450218-00

PATIENT
  Sex: Female

DRUGS (5)
  1. HUMIRA [Suspect]
     Indication: CROHN'S DISEASE
     Route: 058
     Dates: start: 20071111
  2. OCTREOTID [Concomitant]
     Indication: DIARRHOEA
     Route: 058
     Dates: start: 20060501
  3. OCTREOTID [Concomitant]
     Indication: SHORT-BOWEL SYNDROME
  4. PHENPROCOUMON [Concomitant]
     Indication: ANTIPHOSPHOLIPID SYNDROME
     Dosage: ACCORDING TO INR (2-3)
     Route: 048
  5. PHENPROCOUMON [Concomitant]
     Indication: VENOUS THROMBOSIS LIMB

REACTIONS (2)
  - ARTHRALGIA [None]
  - BONE INFARCTION [None]
